FAERS Safety Report 5187684-8 (Version None)
Quarter: 2006Q4

REPORT INFORMATION
  Report Type: 
  Country: None (occurrence: None)
  Receive Date: 20061214
  Receipt Date: 20061129
  Transmission Date: 20070319
  Serious: Yes (Hospitalization)
  Sender: FDA-Public Use
  Company Number: 231707

PATIENT
  Age: 57 Year
  Sex: Male

DRUGS (3)
  1. AVASTIN [Suspect]
     Indication: COLON CANCER METASTATIC
     Dosage: 975 MG, Q3W, INTRAVENOUS
     Route: 042
     Dates: start: 20060928, end: 20061011
  2. XELODA [Suspect]
     Indication: COLORECTAL CANCER METASTATIC
     Dosage: 4400 MG, ORAL
     Route: 048
     Dates: start: 20060928
  3. MITOMYCIN [Suspect]
     Indication: COLORECTAL CANCER METASTATIC

REACTIONS (20)
  - ABDOMINAL DISTENSION [None]
  - ASTHENIA [None]
  - BLOOD ALBUMIN DECREASED [None]
  - BLOOD ALKALINE PHOSPHATASE INCREASED [None]
  - BLOOD BILIRUBIN INCREASED [None]
  - DEHYDRATION [None]
  - DIARRHOEA [None]
  - DISEASE PROGRESSION [None]
  - EXCORIATION [None]
  - FALL [None]
  - FATIGUE [None]
  - GAMMA-GLUTAMYLTRANSFERASE INCREASED [None]
  - HEPATIC FAILURE [None]
  - HYPERGLYCAEMIA [None]
  - HYPOGLYCAEMIA [None]
  - OEDEMA [None]
  - PARTIAL SEIZURES [None]
  - PROCTALGIA [None]
  - SMALL INTESTINAL OBSTRUCTION [None]
  - THROMBOCYTOPENIA [None]
